FAERS Safety Report 5856292-5 (Version None)
Quarter: 2008Q3

REPORT INFORMATION
  Report Type: 
  Country: None (occurrence: None)
  Receive Date: 20080825
  Receipt Date: 20080814
  Transmission Date: 20090109
  Serious: Yes (Other)
  Sender: FDA-Public Use
  Company Number: B0534171A

PATIENT
  Sex: Female

DRUGS (10)
  1. SERETIDE [Suspect]
     Indication: ASTHMA
     Dosage: 2PUFF TWICE PER DAY
     Route: 055
  2. VENTOLIN [Concomitant]
     Route: 065
  3. CICLESONIDE [Concomitant]
     Dosage: 1PUFF IN THE MORNING
     Route: 065
  4. FLIXOTIDE [Concomitant]
     Route: 065
  5. SEREVENT [Concomitant]
     Route: 055
  6. ACIMAX [Concomitant]
     Route: 065
  7. CALTRATE [Concomitant]
     Route: 065
  8. VITAMIN D [Concomitant]
     Route: 065
  9. FOSAMAX [Concomitant]
     Route: 065
  10. ASCORBIC ACID [Concomitant]
     Route: 065

REACTIONS (4)
  - ASTHMA [None]
  - COUGH [None]
  - DYSPNOEA [None]
  - RESPIRATION ABNORMAL [None]
